FAERS Safety Report 9707473 (Version 3)
Quarter: 2014Q2

REPORT INFORMATION
  Report Type: Spontaneous
  Country: FR (occurrence: None)
  Receive Date: 20131121
  Receipt Date: 20140519
  Transmission Date: 20141212
  Serious: Yes (Other)
  Sender: FDA-Public Use
  Company Number: NGX_02101_2013

PATIENT
  Age: 52 Year
  Sex: Female

DRUGS (7)
  1. QUTENZA [Suspect]
     Indication: NEUROPATHY PERIPHERAL
     Dosage: DF SECOND APPLICATION
     Route: 061
     Dates: start: 20130725, end: 20130725
  2. EMLA [Suspect]
     Indication: PREMEDICATION
     Dosage: DF
     Dates: start: 20130725, end: 20130725
  3. KETAMINE (KETAMINE) [Suspect]
     Indication: PREMEDICATION
     Route: 060
     Dates: start: 20130725, end: 20130725
  4. IXPRIM [Suspect]
     Indication: PREMEDICATION
     Dosage: [BEFORE THE APPLICATION]
     Dates: start: 20131107, end: 20131107
  5. ZAMUDOL [Concomitant]
  6. TAMOXIFENE [Concomitant]
  7. XYZALL [Concomitant]

REACTIONS (8)
  - Application site erythema [None]
  - Application site inflammation [None]
  - Application site hyperaesthesia [None]
  - Burns second degree [None]
  - Drug ineffective [None]
  - Application site vesicles [None]
  - Dermatitis allergic [None]
  - Application site pain [None]
